FAERS Safety Report 15966381 (Version 1)
Quarter: 2019Q1

REPORT INFORMATION
  Report Type: Spontaneous
  Country: CH (occurrence: CH)
  Receive Date: 20190215
  Receipt Date: 20190215
  Transmission Date: 20190418
  Serious: Yes (Hospitalization)
  Sender: FDA-Public Use
  Company Number: CH-ROCHE-2265511

PATIENT
  Age: 78 Year
  Sex: Female

DRUGS (40)
  1. VINCRISTIN [Suspect]
     Active Substance: VINCRISTINE
     Dosage: IN TOTAL
     Route: 042
     Dates: start: 20181106, end: 20181106
  2. ENDOXAN [Suspect]
     Active Substance: CYCLOPHOSPHAMIDE
     Dosage: IN TOTAL
     Route: 042
     Dates: start: 20190109, end: 20190109
  3. ADRIBLASTIN [Suspect]
     Active Substance: DOXORUBICIN HYDROCHLORIDE
     Dosage: IN TOTAL
     Route: 042
     Dates: start: 20181218, end: 20181218
  4. ADRIBLASTIN [Suspect]
     Active Substance: DOXORUBICIN HYDROCHLORIDE
     Dosage: IN TOTAL
     Route: 042
     Dates: start: 20190129, end: 20190129
  5. ENDOXAN [Suspect]
     Active Substance: CYCLOPHOSPHAMIDE
     Dosage: IN TOTAL
     Route: 042
     Dates: start: 20181127, end: 20181127
  6. ENDOXAN [Suspect]
     Active Substance: CYCLOPHOSPHAMIDE
     Dosage: IN TOTAL
     Route: 042
     Dates: start: 20181218, end: 20181218
  7. ENDOXAN [Suspect]
     Active Substance: CYCLOPHOSPHAMIDE
     Dosage: IN TOTAL
     Route: 042
     Dates: start: 20190129, end: 20190129
  8. EUTHYROX [Concomitant]
     Active Substance: LEVOTHYROXINE SODIUM
     Route: 048
  9. BIOFLORIN (SWITZERLAND) [Concomitant]
     Route: 048
  10. ZYLORIC [Concomitant]
     Active Substance: ALLOPURINOL
     Route: 048
  11. MABTHERA [Suspect]
     Active Substance: RITUXIMAB
     Indication: B-CELL LYMPHOMA
     Dosage: IN TOTAL
     Route: 042
     Dates: start: 20181008, end: 20181008
  12. MABTHERA [Suspect]
     Active Substance: RITUXIMAB
     Dosage: IN TOTAL
     Route: 042
     Dates: start: 20190109, end: 20190109
  13. ENDOXAN [Suspect]
     Active Substance: CYCLOPHOSPHAMIDE
     Indication: B-CELL LYMPHOMA
     Dosage: IN TOTAL
     Route: 042
     Dates: start: 20181008, end: 20181008
  14. ADRIBLASTIN [Suspect]
     Active Substance: DOXORUBICIN HYDROCHLORIDE
     Indication: B-CELL LYMPHOMA
     Dosage: IN TOTAL
     Route: 042
     Dates: start: 20181008, end: 20181008
  15. SPIRICORT [Suspect]
     Active Substance: PREDNISOLONE
     Route: 048
     Dates: start: 20181107, end: 20181110
  16. SPIRICORT [Suspect]
     Active Substance: PREDNISOLONE
     Route: 048
     Dates: start: 20181128, end: 20181201
  17. SPIRICORT [Suspect]
     Active Substance: PREDNISOLONE
     Route: 048
     Dates: start: 20190130, end: 20190202
  18. VINCRISTIN [Suspect]
     Active Substance: VINCRISTINE
     Dosage: IN TOTAL
     Route: 042
     Dates: start: 20190129, end: 20190129
  19. SPIRICORT [Suspect]
     Active Substance: PREDNISOLONE
     Indication: B-CELL LYMPHOMA
     Route: 048
     Dates: start: 20181009, end: 20181012
  20. PANTOPRAZOL [Concomitant]
     Active Substance: PANTOPRAZOLE SODIUM
     Route: 048
  21. MABTHERA [Suspect]
     Active Substance: RITUXIMAB
     Dosage: IN TOTAL
     Route: 042
     Dates: start: 20181127, end: 20181127
  22. MABTHERA [Suspect]
     Active Substance: RITUXIMAB
     Dosage: IN TOTAL
     Route: 042
     Dates: start: 20181218, end: 20181218
  23. VINCRISTIN [Suspect]
     Active Substance: VINCRISTINE
     Dosage: IN TOTAL
     Route: 042
     Dates: start: 20181218, end: 20181218
  24. ADRIBLASTIN [Suspect]
     Active Substance: DOXORUBICIN HYDROCHLORIDE
     Dosage: IN TOTAL
     Route: 042
     Dates: start: 20181127, end: 20181127
  25. ADRIBLASTIN [Suspect]
     Active Substance: DOXORUBICIN HYDROCHLORIDE
     Dosage: IN TOTAL
     Route: 042
     Dates: start: 20190109, end: 20190109
  26. NEBIVOLOL SANDOZ [Concomitant]
     Active Substance: NEBIVOLOL
     Route: 048
  27. BACTRIM [Concomitant]
     Active Substance: SULFAMETHOXAZOLE\TRIMETHOPRIM
     Route: 048
  28. VINCRISTIN [Suspect]
     Active Substance: VINCRISTINE
     Dosage: IN TOTAL
     Route: 042
     Dates: start: 20190109, end: 20190109
  29. ADRIBLASTIN [Suspect]
     Active Substance: DOXORUBICIN HYDROCHLORIDE
     Dosage: IN TOTAL
     Route: 042
     Dates: start: 20181106, end: 20181106
  30. ASPIRIN CARDIO [Concomitant]
     Active Substance: ASPIRIN
     Route: 048
  31. VALTREX [Concomitant]
     Active Substance: VALACYCLOVIR HYDROCHLORIDE
     Route: 048
  32. CRESTOR [Concomitant]
     Active Substance: ROSUVASTATIN CALCIUM
     Route: 048
  33. MABTHERA [Suspect]
     Active Substance: RITUXIMAB
     Dosage: IN TOTAL
     Route: 042
     Dates: start: 20190129, end: 20190129
  34. VINCRISTIN [Suspect]
     Active Substance: VINCRISTINE
     Indication: B-CELL LYMPHOMA
     Dosage: IN TOTAL
     Route: 042
     Dates: start: 20181008, end: 20181008
  35. SPIRICORT [Suspect]
     Active Substance: PREDNISOLONE
     Route: 048
     Dates: start: 20181219, end: 20181222
  36. PLAVIX [Concomitant]
     Active Substance: CLOPIDOGREL BISULFATE
     Route: 048
  37. MABTHERA [Suspect]
     Active Substance: RITUXIMAB
     Dosage: IN TOTAL
     Route: 042
     Dates: start: 20181106, end: 20181106
  38. VINCRISTIN [Suspect]
     Active Substance: VINCRISTINE
     Dosage: IN TOTAL
     Route: 042
     Dates: start: 20181127, end: 20181127
  39. ENDOXAN [Suspect]
     Active Substance: CYCLOPHOSPHAMIDE
     Dosage: IN TOTAL
     Route: 042
     Dates: start: 20181106, end: 20181106
  40. SPIRICORT [Suspect]
     Active Substance: PREDNISOLONE
     Route: 048
     Dates: start: 20190110, end: 20190113

REACTIONS (4)
  - Cardiac failure [Recovered/Resolved]
  - Oedema [Recovered/Resolved]
  - Left ventricular failure [Recovered/Resolved]
  - Dyspnoea [Recovered/Resolved]

NARRATIVE: CASE EVENT DATE: 20190129
